FAERS Safety Report 6160594-5 (Version None)
Quarter: 2009Q2

REPORT INFORMATION
  Report Type: 
  Country: None (occurrence: None)
  Receive Date: 20090420
  Receipt Date: 20090410
  Transmission Date: 20091009
  Serious: Yes (Hospitalization)
  Sender: FDA-Public Use
  Company Number: FR-BRISTOL-MYERS SQUIBB COMPANY-14592414

PATIENT
  Age: 79 Year
  Sex: Male

DRUGS (9)
  1. GLUCOPHAGE [Suspect]
     Indication: TYPE 2 DIABETES MELLITUS
     Dosage: DISCONTINUED ON 26NOV08
     Route: 048
     Dates: start: 20010101
  2. TRIATEC [Suspect]
     Indication: HYPERTENSION
     Dosage: TABLET; DISCONTINUED ON 20JAN09. RESTARTED ON UNK DATE
     Route: 048
     Dates: start: 20010101
  3. AMLODIPINE BESYLATE [Suspect]
     Indication: HYPERTENSION
     Dosage: TABLET; DISCONTINUED ON 24DEC08.REINTRODUCED ON UNK DATE
     Route: 048
     Dates: start: 20010101
  4. FLECAINIDE ACETATE [Concomitant]
     Dosage: 1 DF IN MORNING
  5. KARDEGIC [Concomitant]
     Dosage: 1 DF IN NOON
     Dates: start: 20010101
  6. RILMENIDINE [Concomitant]
     Dosage: 1 DF IN MORNING AND EVENING
     Dates: start: 20010101
  7. GLIBENCLAMIDE [Concomitant]
     Dosage: 5MG; 1 DF- 1/2 IN MORNING
     Dates: start: 20010101
  8. LOSARTAN POTASSIUM [Concomitant]
     Dosage: 50 MG, MORNING
     Dates: start: 20010101
  9. FINASTERIDE [Concomitant]
     Dosage: 1 DF- MORNING
     Dates: start: 20010101

REACTIONS (1)
  - PRURITUS GENERALISED [None]
